FAERS Safety Report 11794168 (Version 1)
Quarter: 2015Q4

REPORT INFORMATION
  Report Type: Spontaneous
  Country: US (occurrence: US)
  Receive Date: 20151202
  Receipt Date: 20151202
  Transmission Date: 20160305
  Serious: No
  Sender: FDA-Public Use
  Company Number: US-MISSION PHARMACAL COMPANY-1044920

PATIENT
  Age: 27 Year
  Sex: Male

DRUGS (2)
  1. THIOLA [Concomitant]
     Active Substance: TIOPRONIN
     Route: 048
     Dates: start: 20150324
  2. UROCIT-K [Suspect]
     Active Substance: POTASSIUM CITRATE
     Indication: CYSTINURIA
     Route: 065

REACTIONS (2)
  - Nausea [Unknown]
  - Nephrolithiasis [Unknown]
